FAERS Safety Report 9393771 (Version 2)
Quarter: 2013Q3

REPORT INFORMATION
  Report Type: Spontaneous
  Country: US (occurrence: US)
  Receive Date: 20130710
  Receipt Date: 20130826
  Transmission Date: 20140515
  Serious: No
  Sender: FDA-Public Use
  Company Number: US-PFIZER INC-2013202145

PATIENT
  Age: 78 Year
  Sex: Female

DRUGS (4)
  1. LYRICA [Suspect]
     Dosage: 125 MG, UNK
  2. LYRICA [Suspect]
     Dosage: 50 MG, UNK
  3. LYRICA [Suspect]
     Dosage: 75 MG, 2X/DAY
  4. LYRICA [Suspect]
     Dosage: UNK

REACTIONS (10)
  - Intentional drug misuse [Unknown]
  - Insomnia [Unknown]
  - Nervousness [Unknown]
  - Joint swelling [Unknown]
  - Oedema peripheral [Unknown]
  - Somnolence [Unknown]
  - Middle insomnia [Unknown]
  - Drug ineffective [Unknown]
  - Swelling [Unknown]
  - Therapeutic response unexpected [Unknown]
